FAERS Safety Report 25863557 (Version 1)
Quarter: 2025Q3

REPORT INFORMATION
  Report Type: Spontaneous
  Country: GB (occurrence: GB)
  Receive Date: 20250930
  Receipt Date: 20250930
  Transmission Date: 20251020
  Serious: Yes (Hospitalization, Other)
  Sender: ACCORD
  Company Number: None

PATIENT
  Age: 83 Year
  Sex: Male

DRUGS (12)
  1. FUROSEMIDE [Suspect]
     Active Substance: FUROSEMIDE
     Indication: Product used for unknown indication
     Dosage: AFTER MEALS
  2. DAPTOMYCIN [Suspect]
     Active Substance: DAPTOMYCIN
     Indication: Product used for unknown indication
  3. SPIRONOLACTONE [Suspect]
     Active Substance: SPIRONOLACTONE
     Indication: Product used for unknown indication
  4. ACETYLCYSTEINE [Concomitant]
     Active Substance: ACETYLCYSTEINE
  5. ISOSORBIDE [Concomitant]
     Active Substance: ISOSORBIDE
  6. EPLERENONE [Concomitant]
     Active Substance: EPLERENONE
  7. HYDROMOL [Concomitant]
  8. EDOXABAN [Concomitant]
     Active Substance: EDOXABAN
  9. CHLORPHENIRAMINE MALEATE [Concomitant]
     Active Substance: CHLORPHENIRAMINE MALEATE
  10. BISOPROLOL [Concomitant]
     Active Substance: BISOPROLOL
  11. RANOLAZINE [Concomitant]
     Active Substance: RANOLAZINE
  12. ALLOPURINOL [Concomitant]
     Active Substance: ALLOPURINOL

REACTIONS (1)
  - Acute kidney injury [Recovered/Resolved]
